FAERS Safety Report 9733696 (Version 1)
Quarter: 2013Q4

REPORT INFORMATION
  Report Type: Spontaneous
  Country: NO (occurrence: NO)
  Receive Date: 20131205
  Receipt Date: 20131205
  Transmission Date: 20140711
  Serious: Yes (Death, Hospitalization)
  Sender: FDA-Public Use
  Company Number: PHHY2013NO141588

PATIENT
  Age: 65 Year
  Sex: Female

DRUGS (6)
  1. DICLOFENAC [Suspect]
     Indication: PAIN
     Dosage: 50 MG, PRN
     Route: 048
     Dates: start: 20131114
  2. CARVEDILOL [Concomitant]
     Indication: HYPERTENSION
     Route: 048
  3. CIPRALEX [Concomitant]
     Indication: DEPRESSION
     Route: 048
  4. LEVAXIN [Concomitant]
     Indication: HYPOTHYROIDISM
     Route: 048
  5. ALBYL-E [Concomitant]
     Route: 048
  6. LESCOL [Concomitant]
     Indication: BLOOD CHOLESTEROL INCREASED
     Route: 048

REACTIONS (7)
  - Anaphylactic reaction [Fatal]
  - Throat irritation [Fatal]
  - Dyspnoea [Fatal]
  - Respiratory failure [Fatal]
  - Cardiac failure [Fatal]
  - Loss of consciousness [Fatal]
  - Cardiac arrest [Fatal]
